FAERS Safety Report 8501936-2 (Version None)
Quarter: 2012Q3

REPORT INFORMATION
  Report Type: 
  Country: None (occurrence: None)
  Receive Date: 20120711
  Receipt Date: 20120618
  Transmission Date: 20120928
  Serious: Yes (Hospitalization)
  Sender: FDA-Public Use
  Company Number: CA-JNJFOC-20120608699

PATIENT
  Sex: Female
  Weight: 59 kg

DRUGS (2)
  1. REMICADE [Suspect]
     Indication: COLITIS ULCERATIVE
     Route: 042
     Dates: start: 20120503
  2. ANTIBIOTIC NOS [Concomitant]
     Route: 042
     Dates: end: 20120608

REACTIONS (1)
  - CLOSTRIDIAL INFECTION [None]
